FAERS Safety Report 21808814 (Version 1)
Quarter: 2023Q1

REPORT INFORMATION
  Report Type: Spontaneous
  Country: FR (occurrence: FR)
  Receive Date: 20230103
  Receipt Date: 20230103
  Transmission Date: 20230418
  Serious: Yes (Life-Threatening, Hospitalization, Other)
  Sender: FDA-Public Use
  Company Number: FR-DENTSPLY-2022SCDP000369

PATIENT
  Age: 59 Year
  Sex: Male
  Weight: 116 kg

DRUGS (6)
  1. EPINEPHRINE BITARTRATE\LIDOCAINE HYDROCHLORIDE [Suspect]
     Active Substance: EPINEPHRINE BITARTRATE\LIDOCAINE HYDROCHLORIDE
     Indication: Anaesthesia
     Dosage: 100 MILLIGRAM
     Route: 042
     Dates: start: 20220930, end: 20220930
  2. KETAMINE [Suspect]
     Active Substance: KETAMINE
     Indication: Anaesthesia
     Dosage: 30 MILLIGRAM
     Route: 042
     Dates: start: 20220930, end: 20220930
  3. ATRACURIUM [Suspect]
     Active Substance: ATRACURIUM
     Indication: Anaesthesia
     Dosage: 50 MILLIGRAM
     Route: 042
     Dates: start: 20220930, end: 20220930
  4. PROPOFOL [Concomitant]
     Active Substance: PROPOFOL
     Indication: Analgesic therapy
     Dosage: 400 MILLIGRAM
     Route: 042
     Dates: start: 20220930, end: 20221001
  5. MIDAZOLAM HYDROCHLORIDE [Concomitant]
     Active Substance: MIDAZOLAM HYDROCHLORIDE
     Indication: Analgesic therapy
     Dosage: UNK
     Route: 042
     Dates: start: 20220930, end: 20221001
  6. SUFENTA [Concomitant]
     Active Substance: SUFENTANIL CITRATE
     Indication: Analgesic therapy
     Dosage: 25 MICROGRAM
     Route: 042
     Dates: start: 20220930, end: 20221001

REACTIONS (1)
  - Anaphylactic shock [Recovered/Resolved]

NARRATIVE: CASE EVENT DATE: 20220930
